FAERS Safety Report 5031736-X (Version None)
Quarter: 2006Q2

REPORT INFORMATION
  Report Type: 
  Country: None (occurrence: None)
  Receive Date: 20060616
  Receipt Date: 20060613
  Transmission Date: 20061013
  Serious: Yes (Hospitalization)
  Sender: FDA-Public Use
  Company Number: S06-USA-02272-01

PATIENT
  Sex: Female

DRUGS (3)
  1. THYROID TAB [Suspect]
     Indication: HYPOTHYROIDISM
     Dosage: 30 MG QD PO
     Route: 048
     Dates: start: 20060501, end: 20060501
  2. THYROID TAB [Suspect]
     Indication: HYPOTHYROIDISM
     Dosage: 15 MG QD PO
     Route: 048
     Dates: start: 20060501
  3. LISINOPRIL AND HYDROCHLOROTHIAZIDE [Concomitant]

REACTIONS (3)
  - CHEST DISCOMFORT [None]
  - DYSPNOEA [None]
  - TRI-IODOTHYRONINE ABNORMAL [None]
